FAERS Safety Report 7046356-5 (Version None)
Quarter: 2010Q4

REPORT INFORMATION
  Report Type: 
  Country: None (occurrence: None)
  Receive Date: 20101014
  Receipt Date: 20101005
  Transmission Date: 20110411
  Serious: Yes (Disabling, Other)
  Sender: FDA-Public Use
  Company Number: IR-WYE-H18009210

PATIENT
  Age: 40 Year
  Sex: Male

DRUGS (4)
  1. RAPAMUNE [Suspect]
     Route: 048
     Dates: start: 20050621, end: 20070101
  2. RAPAMUNE [Suspect]
     Dosage: UNSPECIFIED
     Route: 048
     Dates: end: 20100119
  3. PREDNISOLONE [Concomitant]
     Route: 048
     Dates: start: 20040301
  4. CELLCEPT [Concomitant]
     Indication: IMMUNOSUPPRESSANT DRUG THERAPY
     Dates: start: 20040301

REACTIONS (2)
  - HYDRONEPHROSIS [None]
  - LYMPHOEDEMA [None]
